FAERS Safety Report 9330950 (Version 2)
Quarter: 2013Q3

REPORT INFORMATION
  Report Type: Report from Study
  Country: BR (occurrence: BR)
  Receive Date: 20130605
  Receipt Date: 20130705
  Transmission Date: 20140515
  Serious: Yes (Other)
  Sender: FDA-Public Use
  Company Number: PHHY2013BR053093

PATIENT
  Age: 65 Year
  Sex: Female
  Weight: 70 kg

DRUGS (5)
  1. ACLASTA [Suspect]
     Indication: OSTEOPOROSIS
     Dosage: 5MG/ 100ML, EVERY YEAR
     Route: 042
     Dates: start: 201304
  2. CODATEN [Concomitant]
     Dosage: UNK UKN, UNK
  3. PHARMATON [Concomitant]
     Dosage: UNK UKN, UNK
  4. DAFLON                             /01026201/ [Concomitant]
     Dosage: UNK UKN, UNK
  5. ANALGESICS [Concomitant]
     Indication: PAIN IN EXTREMITY
     Dosage: UNK UKN, UNK

REACTIONS (1)
  - Herpes zoster infection neurological [Recovering/Resolving]
